FAERS Safety Report 22384268 (Version 1)
Quarter: 2023Q2

REPORT INFORMATION
  Report Type: Spontaneous
  Country: US (occurrence: None)
  Receive Date: 20230527
  Receipt Date: 20230527
  Transmission Date: 20230722
  Serious: Yes (Other)
  Sender: FDA-Public Use
  Company Number: None

PATIENT
  Age: 23 Year
  Sex: Female

DRUGS (1)
  1. KOSAS REVEALER SKIN-IMPROVING FOUNDATION BROAD SPECTRUM SPF-25 - MEDIU [Suspect]
     Active Substance: ZINC OXIDE
     Indication: Therapeutic skin care topical
     Route: 061
     Dates: start: 20230402

REACTIONS (4)
  - Drug hypersensitivity [None]
  - Chemical burn of skin [None]
  - Product formulation issue [None]
  - Pain [None]

NARRATIVE: CASE EVENT DATE: 20230402
